FAERS Safety Report 10151428 (Version 1)
Quarter: 2014Q2

REPORT INFORMATION
  Report Type: Report from Study
  Country: US (occurrence: US)
  Receive Date: 20140504
  Receipt Date: 20140504
  Transmission Date: 20141212
  Serious: Yes (Hospitalization, Other)
  Sender: FDA-Public Use
  Company Number: GXBR2014US001150

PATIENT
  Sex: Female
  Weight: 54.88 kg

DRUGS (2)
  1. ENOXAPARIN SODIUM [Suspect]
     Indication: PHLEBITIS DEEP
     Dosage: 60 MG, QD
     Route: 058
  2. ENOXAPARIN SODIUM [Suspect]
     Indication: THROMBOSIS IN DEVICE

REACTIONS (5)
  - Loss of consciousness [Recovered/Resolved]
  - Red blood cell count decreased [Not Recovered/Not Resolved]
  - Heart rate decreased [Not Recovered/Not Resolved]
  - Malaise [Not Recovered/Not Resolved]
  - Fatigue [Not Recovered/Not Resolved]
